FAERS Safety Report 7522209-0 (Version None)
Quarter: 2011Q2

REPORT INFORMATION
  Report Type: 
  Country: None (occurrence: None)
  Receive Date: 20110523
  Receipt Date: 20110509
  Transmission Date: 20111010
  Serious: Yes (Other)
  Sender: FDA-Public Use
  Company Number: 2011028627

PATIENT
  Age: 64 Year
  Sex: Female
  Weight: 83.4619 kg

DRUGS (24)
  1. HIZENTRA [Suspect]
  2. LEVOTHYROXINE SODIUM [Concomitant]
  3. FUROSEMIDE [Concomitant]
  4. PROVENTIL [Concomitant]
  5. AZITHROMYCIN [Concomitant]
  6. DYAZIDE [Concomitant]
  7. ADVAIR DISKUS 100/50 [Concomitant]
  8. GLYBURIDE [Concomitant]
  9. ZYRTEC [Concomitant]
  10. HYDROCODONE (HYDROCODONE) [Concomitant]
  11. CYMBALTA [Concomitant]
  12. SINGULAIR [Concomitant]
  13. MUCINEX [Concomitant]
  14. TRAMADOL HCL [Concomitant]
  15. NEXIUM [Concomitant]
  16. ZOLPIDEM [Concomitant]
  17. ZETIA [Concomitant]
  18. CALTRATE (CALCIUM CARBONATE) [Concomitant]
  19. ESTRACE [Concomitant]
  20. HIZENTRA [Suspect]
     Indication: IMMUNODEFICIENCY COMMON VARIABLE
     Dosage: SEE IMAGE
     Route: 058
     Dates: start: 20110215
  21. CLONAZEPAM [Concomitant]
  22. NASONEX [Concomitant]
  23. MULTIVITAMIN (ACCOMIN MULTIVITAMIN) [Concomitant]
  24. LISINOPRIL [Concomitant]

REACTIONS (2)
  - BRONCHITIS [None]
  - INFECTION [None]
